FAERS Safety Report 11795097 (Version 1)
Quarter: 2015Q4

REPORT INFORMATION
  Report Type: Spontaneous
  Country: CN (occurrence: CN)
  Receive Date: 20151202
  Receipt Date: 20151202
  Transmission Date: 20160305
  Serious: Yes (Hospitalization, Other)
  Sender: FDA-Public Use
  Company Number: CN-GILEAD-2015-0185601

PATIENT
  Age: 60 Year
  Sex: Male

DRUGS (1)
  1. HEPSERA [Suspect]
     Active Substance: ADEFOVIR DIPIVOXIL
     Indication: PRODUCT USED FOR UNKNOWN INDICATION
     Dosage: 10 MG, QD
     Route: 065

REACTIONS (5)
  - Fanconi syndrome acquired [Recovering/Resolving]
  - Glomerulonephritis membranoproliferative [Unknown]
  - IgA nephropathy [Unknown]
  - Renal impairment [Unknown]
  - Hepatitis B surface antigen positive [Unknown]
